FAERS Safety Report 18054196 (Version 1)
Quarter: 2020Q3

REPORT INFORMATION
  Report Type: Spontaneous
  Country: US (occurrence: US)
  Receive Date: 20200722
  Receipt Date: 20200722
  Transmission Date: 20201103
  Serious: No
  Sender: FDA-Public Use
  Company Number: US-BIOGEN-2020BI00838430

PATIENT
  Sex: Female

DRUGS (6)
  1. VALIUM [Concomitant]
     Active Substance: DIAZEPAM
     Route: 065
  2. GABAPENTIN. [Concomitant]
     Active Substance: GABAPENTIN
     Route: 065
  3. PLEGRIDY [Suspect]
     Active Substance: PEGINTERFERON BETA-1A
     Indication: MULTIPLE SCLEROSIS
     Dosage: INJECT 125MCG SUBCUTANEOUSLY EVERY 2 WEEKS
     Route: 058
     Dates: start: 201904
  4. ALEVE [Concomitant]
     Active Substance: NAPROXEN SODIUM
     Route: 065
  5. BACLOFEN. [Concomitant]
     Active Substance: BACLOFEN
     Route: 065
  6. TYLENOL EXTRA STRENGTH [Concomitant]
     Active Substance: ACETAMINOPHEN
     Route: 065

REACTIONS (4)
  - Drug ineffective [Unknown]
  - Pain [Recovered/Resolved]
  - Burning sensation [Recovered/Resolved]
  - Injection site erythema [Not Recovered/Not Resolved]
